FAERS Safety Report 5372869-8 (Version None)
Quarter: 2007Q2

REPORT INFORMATION
  Report Type: 
  Country: None (occurrence: None)
  Receive Date: 20070626
  Receipt Date: 20070611
  Transmission Date: 20071010
  Serious: Yes (Life-Threatening, Hospitalization, Other)
  Sender: FDA-Public Use
  Company Number: 100#08#2007-02174

PATIENT
  Age: 30 Year
  Sex: Female

DRUGS (2)
  1. ASPIRIN [Suspect]
     Indication: DRUG USE FOR UNKNOWN INDICATION
     Dosage: CUMULATIVE, ORAL
  2. NAPROXEN [Suspect]
     Indication: DRUG USE FOR UNKNOWN INDICATION
     Dosage: ORAL ONCE
     Route: 048
     Dates: start: 20050601

REACTIONS (9)
  - ABDOMINAL DISCOMFORT [None]
  - ANGIOEDEMA [None]
  - DRUG HYPERSENSITIVITY [None]
  - FALL [None]
  - HEADACHE [None]
  - NASAL POLYPS [None]
  - PULMONARY OEDEMA [None]
  - SHOCK [None]
  - SINUSITIS [None]
